FAERS Safety Report 6787388-1 (Version None)
Quarter: 2010Q2

REPORT INFORMATION
  Report Type: 
  Country: None (occurrence: None)
  Receive Date: 20100621
  Receipt Date: 20100614
  Transmission Date: 20101027
  Serious: Yes (Death)
  Sender: FDA-Public Use
  Company Number: A-CH2010-37002

PATIENT
  Age: 4 Year
  Sex: Male

DRUGS (3)
  1. ZAVESCA [Suspect]
     Indication: TAY-SACHS DISEASE
     Dosage: 100 MG, TID, ORAL
     Route: 048
     Dates: start: 20100227, end: 20100501
  2. VIGABATRIN (VIGABATRIN) [Concomitant]
  3. PRIMIDONE [Concomitant]

REACTIONS (4)
  - CEREBROVASCULAR ACCIDENT [None]
  - OFF LABEL USE [None]
  - RESPIRATORY TRACT INFECTION [None]
  - SEPTIC EMBOLUS [None]
